FAERS Safety Report 5924926-2 (Version None)
Quarter: 2008Q4

REPORT INFORMATION
  Report Type: 
  Country: None (occurrence: None)
  Receive Date: 20081020
  Receipt Date: 20081020
  Transmission Date: 20090506
  Serious: Yes (Life-Threatening, Other)
  Sender: FDA-Public Use
  Company Number: None

PATIENT
  Sex: Female
  Weight: 89.8122 kg

DRUGS (2)
  1. CHANTIX [Suspect]
     Indication: SMOKING CESSATION THERAPY
     Dosage: 0.5MG DAYLY PO
     Route: 048
     Dates: start: 20080818, end: 20080825
  2. LUVOX -FLUVOXIMINE- [Concomitant]

REACTIONS (16)
  - ABNORMAL DREAMS [None]
  - ANGER [None]
  - BALANCE DISORDER [None]
  - CARDIAC DISORDER [None]
  - CEREBRAL DISORDER [None]
  - DELUSION [None]
  - DEPRESSION [None]
  - DIZZINESS [None]
  - FEAR [None]
  - FEELING OF DESPAIR [None]
  - INSOMNIA [None]
  - MOOD SWINGS [None]
  - MUSCLE SPASMS [None]
  - PARANOIA [None]
  - SUICIDAL IDEATION [None]
  - UNEVALUABLE EVENT [None]
